FAERS Safety Report 8423247-6 (Version None)
Quarter: 2012Q2

REPORT INFORMATION
  Report Type: 
  Country: None (occurrence: None)
  Receive Date: 20120608
  Receipt Date: 20120605
  Transmission Date: 20120825
  Serious: Yes (Hospitalization)
  Sender: FDA-Public Use
  Company Number: US-BAYER-2012-047399

PATIENT
  Age: 21 Year
  Sex: Female
  Weight: 69.841 kg

DRUGS (6)
  1. BEYAZ [Suspect]
     Indication: POLYCYSTIC OVARIES
  2. METFORMIN HYDROCHLORIDE [Concomitant]
     Dosage: 500 UNK, UNK
  3. BEYAZ [Suspect]
     Indication: ENDOMETRIOSIS
  4. SPIRONOLACTONE [Concomitant]
     Dosage: 25 MG, BID
  5. BEYAZ [Suspect]
     Indication: CONTRACEPTION
     Dosage: UNK UNK, QD
     Route: 048
     Dates: start: 20101201, end: 20120111
  6. ZOLOFT [Concomitant]
     Dosage: 50 MG, QD

REACTIONS (3)
  - DYSPNOEA [None]
  - PULMONARY EMBOLISM [None]
  - CHEST PAIN [None]
